FAERS Safety Report 13688525 (Version 1)
Quarter: 2017Q2

REPORT INFORMATION
  Report Type: Spontaneous
  Country: US (occurrence: US)
  Receive Date: 20170623
  Receipt Date: 20170623
  Transmission Date: 20170830
  Serious: Yes (Hospitalization)
  Sender: FDA-Public Use
  Company Number: None

PATIENT
  Age: 70 Year
  Sex: Male
  Weight: 94.7 kg

DRUGS (1)
  1. RITUXIMAB (MO AB C2B8 ANTI CD20, CHIMERIC) [Suspect]
     Active Substance: RITUXIMAB
     Dates: end: 20170206

REACTIONS (2)
  - Neutropenia [None]
  - Influenza like illness [None]

NARRATIVE: CASE EVENT DATE: 20170208
